FAERS Safety Report 9027719 (Version 1)
Quarter: 2013Q1

REPORT INFORMATION
  Report Type: Spontaneous
  Country: US (occurrence: US)
  Receive Date: 20130124
  Receipt Date: 20130124
  Transmission Date: 20140127
  Serious: No
  Sender: FDA-Public Use
  Company Number: US-009507513-1301USA008638

PATIENT
  Age: 70 Year
  Sex: Female

DRUGS (3)
  1. NASONEX [Suspect]
     Indication: NASAL CONGESTION
     Dosage: ONE PUFF/ONCE A DAY IN THE MORNING
     Route: 045
     Dates: start: 20130105, end: 20130116
  2. AVAPRO [Concomitant]
  3. HYDROCHLOROTHIAZIDE [Concomitant]

REACTIONS (3)
  - Middle insomnia [Not Recovered/Not Resolved]
  - Underdose [Unknown]
  - Inappropriate schedule of drug administration [Unknown]
